FAERS Safety Report 4345663-4 (Version None)
Quarter: 2004Q2

REPORT INFORMATION
  Report Type: 
  Country: None (occurrence: None)
  Receive Date: 20040421
  Receipt Date: 20040408
  Transmission Date: 20050107
  Serious: Yes (Hospitalization, Other)
  Sender: FDA-Public Use
  Company Number: HQWYE461103SEP03

PATIENT
  Age: 75 Year
  Sex: Female
  Weight: 58.11 kg

DRUGS (27)
  1. RAPAMUNE [Suspect]
     Indication: PROPHYLAXIS AGAINST TRANSPLANT REJECTION
     Dosage: SEE IMAGE
     Route: 048
     Dates: start: 20030623, end: 20030820
  2. RAPAMUNE [Suspect]
     Indication: PROPHYLAXIS AGAINST TRANSPLANT REJECTION
     Dosage: SEE IMAGE
     Route: 048
     Dates: start: 20030822, end: 20030824
  3. RAPAMUNE [Suspect]
     Indication: PROPHYLAXIS AGAINST TRANSPLANT REJECTION
     Dosage: SEE IMAGE
     Route: 048
     Dates: start: 20030825, end: 20030828
  4. RAPAMUNE [Suspect]
     Indication: PROPHYLAXIS AGAINST TRANSPLANT REJECTION
     Dosage: SEE IMAGE
     Route: 048
     Dates: start: 20030829, end: 20030915
  5. GENGRAF [Suspect]
     Indication: PROPHYLAXIS AGAINST TRANSPLANT REJECTION
     Dosage: SEE IMAGE
     Route: 048
     Dates: end: 20030811
  6. GENGRAF [Suspect]
     Indication: PROPHYLAXIS AGAINST TRANSPLANT REJECTION
     Dosage: SEE IMAGE
     Route: 048
     Dates: start: 20030812, end: 20030818
  7. GENGRAF [Suspect]
     Indication: PROPHYLAXIS AGAINST TRANSPLANT REJECTION
     Dosage: SEE IMAGE
     Route: 048
     Dates: start: 20030820, end: 20030824
  8. GENGRAF [Suspect]
     Indication: PROPHYLAXIS AGAINST TRANSPLANT REJECTION
     Dosage: SEE IMAGE
     Route: 048
     Dates: start: 20030825, end: 20030901
  9. GENGRAF [Suspect]
     Indication: PROPHYLAXIS AGAINST TRANSPLANT REJECTION
     Dosage: SEE IMAGE
     Route: 048
     Dates: start: 20030901, end: 20030908
  10. GENGRAF [Suspect]
     Indication: PROPHYLAXIS AGAINST TRANSPLANT REJECTION
     Dosage: SEE IMAGE
     Route: 048
     Dates: start: 20030909, end: 20030914
  11. GENGRAF [Suspect]
     Indication: PROPHYLAXIS AGAINST TRANSPLANT REJECTION
     Dosage: SEE IMAGE
     Route: 048
     Dates: start: 20030915, end: 20030917
  12. GENGRAF [Suspect]
     Indication: PROPHYLAXIS AGAINST TRANSPLANT REJECTION
     Dosage: SEE IMAGE
     Route: 048
     Dates: start: 20030919
  13. PREDNISONE [Concomitant]
  14. LIPITOR [Concomitant]
  15. DAPSONE [Concomitant]
  16. NORVASC [Concomitant]
  17. LOPRESSOR [Concomitant]
  18. COLACE (DOCUSATE SODIUM) [Concomitant]
  19. NPH INSULIN [Concomitant]
  20. FOLIC ACID [Concomitant]
  21. ACYCLOVIR [Concomitant]
  22. EPOETIN ALFA (EPOETIN ALFA) [Concomitant]
  23. BUMEX [Concomitant]
  24. MEGACE [Concomitant]
  25. NEXIUM [Concomitant]
  26. MAGNESIUM OXIDE (MAGNESIUM OXIDE) [Concomitant]
  27. OS-CAL + D (CALCIUM CARBONATE/COLECALCIFEROL) [Concomitant]

REACTIONS (10)
  - ASTHENIA [None]
  - BLOOD CREATININE INCREASED [None]
  - BLOOD UREA INCREASED [None]
  - CARDIAC FAILURE CONGESTIVE [None]
  - DRUG INTERACTION [None]
  - FAECAL OCCULT BLOOD POSITIVE [None]
  - HYPOCHROMIC ANAEMIA [None]
  - IMMUNOSUPPRESSANT DRUG LEVEL INCREASED [None]
  - MEAN CELL VOLUME DECREASED [None]
  - MEDICATION ERROR [None]
